FAERS Safety Report 5970839-X (Version None)
Quarter: 2008Q4

REPORT INFORMATION
  Report Type: 
  Country: None (occurrence: None)
  Receive Date: 20081127
  Receipt Date: 20081119
  Transmission Date: 20090506
  Serious: No
  Sender: FDA-Public Use
  Company Number: JP-JNJFOC-20081002831

PATIENT
  Sex: Male

DRUGS (12)
  1. FENTANYL CITRATE [Suspect]
     Route: 062
  2. FENTANYL CITRATE [Suspect]
     Route: 062
  3. FENTANYL CITRATE [Suspect]
     Indication: CANCER PAIN
     Route: 062
  4. FENTANYL CITRATE [Suspect]
     Route: 062
  5. FENTANYL CITRATE [Suspect]
     Indication: CANCER PAIN
     Route: 062
  6. SELBEX [Concomitant]
     Route: 048
  7. GOSHA-JINKI-GAN [Concomitant]
     Route: 048
  8. CASODEX [Concomitant]
     Route: 048
  9. NULOTAN [Concomitant]
     Route: 048
  10. MAGNESSIUM OXIDE [Concomitant]
     Route: 048
  11. PURSENNID [Concomitant]
     Route: 048
  12. PRIMPERAN TAB [Concomitant]
     Route: 048

REACTIONS (2)
  - HAEMORRHAGE SUBCUTANEOUS [None]
  - WRONG TECHNIQUE IN DRUG USAGE PROCESS [None]
